FAERS Safety Report 6182114-1 (Version None)
Quarter: 2009Q2

REPORT INFORMATION
  Report Type: 
  Country: None (occurrence: None)
  Receive Date: 20090507
  Receipt Date: 20090425
  Transmission Date: 20091009
  Serious: Yes (Hospitalization)
  Sender: FDA-Public Use
  Company Number: US-JNJFOC-20090407045

PATIENT
  Sex: Female
  Weight: 86.18 kg

DRUGS (4)
  1. ST. JOSEPH ENTERIC COATED [Suspect]
     Indication: PROPHYLAXIS
     Route: 048
  2. ASPIRIN [Concomitant]
     Indication: CHEST DISCOMFORT
     Route: 048
  3. ASPIRIN [Concomitant]
     Indication: CARDIOVASCULAR EVENT PROPHYLAXIS
     Route: 048
  4. OTHER DRUGS (UNSPECIFIED) [Concomitant]

REACTIONS (4)
  - BLOOD GLUCOSE INCREASED [None]
  - MYOCARDIAL INFARCTION [None]
  - OEDEMA PERIPHERAL [None]
  - WEIGHT DECREASED [None]
